FAERS Safety Report 8857909 (Version 1)
Quarter: 2012Q4

REPORT INFORMATION
  Report Type: 
  Country: US (occurrence: US)
  Receive Date: 20121024
  Receipt Date: 20121024
  Transmission Date: 20130627
  Serious: No
  Sender: FDA-Public Use
  Company Number: US-AMGEN-USASP2012002665

PATIENT
  Age: 17 Year
  Sex: Female

DRUGS (5)
  1. ENBREL [Suspect]
     Indication: PRODUCT USED FOR UNKNOWN INDICATION
     Dosage: 50 mg, qwk
  2. AMOXICILLIN [Concomitant]
     Dosage: 500 mg, UNK
  3. ADVIL                              /00044201/ [Concomitant]
     Dosage: 200 mg, UNK
  4. TYLENOL /00020001/ [Concomitant]
     Dosage: 650 mg, UNK
  5. IMITREX                            /01044801/ [Concomitant]

REACTIONS (2)
  - Tonsillar disorder [Unknown]
  - Pharyngitis [Unknown]
